FAERS Safety Report 6286179-8 (Version None)
Quarter: 2009Q3

REPORT INFORMATION
  Report Type: 
  Country: None (occurrence: None)
  Receive Date: 20090716
  Receipt Date: 20090310
  Transmission Date: 20100115
  Serious: Yes (Hospitalization)
  Sender: FDA-Public Use
  Company Number: 2005BI013814

PATIENT
  Age: 42 Year
  Sex: Female
  Weight: 58.9676 kg

DRUGS (9)
  1. AVONEX [Suspect]
     Indication: MULTIPLE SCLEROSIS
     Dosage: 30 UQ;QW;IM
     Route: 030
     Dates: start: 20040331, end: 20050715
  2. NEURONTIN [Concomitant]
  3. TEGRETOL [Concomitant]
  4. COLACE [Concomitant]
  5. KLONOPIN [Concomitant]
  6. TYLENOL (CAPLET) [Concomitant]
  7. ATIVAN [Concomitant]
  8. PEPCID [Concomitant]
  9. PREV MEDS [Concomitant]

REACTIONS (6)
  - ANXIETY [None]
  - BRADYPHRENIA [None]
  - DEPRESSION [None]
  - MEMORY IMPAIRMENT [None]
  - SLEEP DISORDER [None]
  - SUICIDAL IDEATION [None]
